FAERS Safety Report 7957305-7 (Version None)
Quarter: 2011Q4

REPORT INFORMATION
  Report Type: 
  Country: None (occurrence: None)
  Receive Date: 20111205
  Receipt Date: 20111102
  Transmission Date: 20120403
  Serious: No
  Sender: FDA-Public Use
  Company Number: US-BAYER-2011-108142

PATIENT
  Age: 64 Year
  Sex: Female
  Weight: 113 kg

DRUGS (5)
  1. ATENOLOL [Concomitant]
  2. HYDROCHLOROTHIAZIDE [Concomitant]
  3. LOSARTAN POTASSIUM [Concomitant]
  4. ANTIHYPERTENSIVES [Concomitant]
  5. ALEVE (CAPLET) [Suspect]
     Dosage: 4 DF, UNK

REACTIONS (1)
  - JOINT SWELLING [None]
